FAERS Safety Report 5398502-7 (Version None)
Quarter: 2007Q3

REPORT INFORMATION
  Report Type: 
  Country: None (occurrence: None)
  Receive Date: 20070726
  Receipt Date: 20070125
  Transmission Date: 20080115
  Serious: No
  Sender: FDA-Public Use
  Company Number: US-AMGEN-KDL208563

PATIENT
  Sex: Male

DRUGS (6)
  1. PROCRIT [Suspect]
     Indication: ANAEMIA
     Dates: start: 20060401
  2. LIPITOR [Concomitant]
  3. FLOMAX [Concomitant]
  4. PAXIL [Concomitant]
  5. DEPAKOTE [Concomitant]
     Dates: end: 20070117
  6. IRON [Concomitant]

REACTIONS (2)
  - CONTUSION [None]
  - PLATELET COUNT DECREASED [None]
